FAERS Safety Report 9912159 (Version 2)
Quarter: 2014Q2

REPORT INFORMATION
  Report Type: Spontaneous
  Country: SE (occurrence: SE)
  Receive Date: 20140220
  Receipt Date: 20140526
  Transmission Date: 20141212
  Serious: Yes (Life-Threatening, Hospitalization)
  Sender: FDA-Public Use
  Company Number: SE-BRISTOL-MYERS SQUIBB COMPANY-20190823

PATIENT
  Age: 78 Year
  Sex: Female

DRUGS (4)
  1. ELIQUIS [Suspect]
     Indication: THROMBOSIS PROPHYLAXIS
     Dates: end: 20140111
  2. KALCIPOS-D [Concomitant]
  3. ALVEDON [Concomitant]
  4. FURIX [Concomitant]

REACTIONS (3)
  - Intra-abdominal haemorrhage [Recovered/Resolved]
  - Shock haemorrhagic [Recovered/Resolved]
  - Aneurysm [Recovered/Resolved]
